FAERS Safety Report 6348698-5 (Version None)
Quarter: 2009Q3

REPORT INFORMATION
  Report Type: 
  Country: None (occurrence: None)
  Receive Date: 20090908
  Receipt Date: 20090812
  Transmission Date: 20100115
  Serious: Yes (Death)
  Sender: FDA-Public Use
  Company Number: 9039997-2009-00055

PATIENT
  Age: 27 Year
  Sex: Female

DRUGS (1)
  1. LEVULAN [Suspect]
     Indication: ACNE

REACTIONS (5)
  - ELECTROLYTE IMBALANCE [None]
  - MALAISE [None]
  - NAUSEA [None]
  - SUDDEN CARDIAC DEATH [None]
  - VOMITING [None]
